FAERS Safety Report 12244552 (Version 1)
Quarter: 2016Q2

REPORT INFORMATION
  Report Type: Spontaneous
  Country: FR (occurrence: FR)
  Receive Date: 20160407
  Receipt Date: 20160407
  Transmission Date: 20160815
  Serious: Yes (Other)
  Sender: FDA-Public Use
  Company Number: FR-ACCORD-039485

PATIENT

DRUGS (2)
  1. QUETIAPINE. [Suspect]
     Active Substance: QUETIAPINE
     Indication: PRODUCT USED FOR UNKNOWN INDICATION
  2. VALPROMIDE [Suspect]
     Active Substance: VALPROMIDE
     Indication: BIPOLAR DISORDER

REACTIONS (1)
  - Hyperammonaemic encephalopathy [Recovered/Resolved]
